FAERS Safety Report 6417250-5 (Version None)
Quarter: 2009Q4

REPORT INFORMATION
  Report Type: 
  Country: None (occurrence: None)
  Receive Date: 20091027
  Receipt Date: 20091027
  Transmission Date: 20100525
  Serious: Yes (Life-Threatening)
  Sender: FDA-Public Use
  Company Number: None

PATIENT
  Age: 68 Year
  Sex: Male
  Weight: 80.7 kg

DRUGS (15)
  1. TACROLIMUS [Suspect]
     Indication: LIVER TRANSPLANT
     Dosage: 6 MG Q12 PO
     Route: 048
     Dates: start: 20090804
  2. MYCOPHENOLATE MOFETIL [Concomitant]
  3. PREDNISONE [Concomitant]
  4. ACYCLOVIR [Concomitant]
  5. BACTRIM [Concomitant]
  6. NYSTATIN [Concomitant]
  7. DOCUSATE [Concomitant]
  8. MULTI-VITAMIN [Concomitant]
  9. PRILOSEC [Concomitant]
  10. WARFARIN SODIUM [Concomitant]
  11. DIGOXIN [Concomitant]
  12. FLOMAX [Concomitant]
  13. METOPROLOL [Concomitant]
  14. FUROSEMIDE [Concomitant]
  15. AUGMENTIN [Concomitant]

REACTIONS (2)
  - BLOOD POTASSIUM INCREASED [None]
  - MALAISE [None]
